FAERS Safety Report 20254549 (Version 3)
Quarter: 2022Q1

REPORT INFORMATION
  Report Type: Spontaneous
  Country: PE (occurrence: PE)
  Receive Date: 20211230
  Receipt Date: 20220311
  Transmission Date: 20220423
  Serious: Yes (Other)
  Sender: FDA-Public Use
  Company Number: PE-PFIZER INC-202101758501

PATIENT
  Age: 59 Year
  Sex: Female

DRUGS (1)
  1. ENBREL [Suspect]
     Active Substance: ETANERCEPT
     Indication: Rheumatoid arthritis
     Dosage: UNSPECIFIED DOSE, WEEKLY
     Route: 065
     Dates: end: 20211126

REACTIONS (7)
  - Condition aggravated [Unknown]
  - Nuchal rigidity [Unknown]
  - Tuberculosis [Unknown]
  - Arthritis [Not Recovered/Not Resolved]
  - Insomnia [Unknown]
  - Product dose omission issue [Not Recovered/Not Resolved]
  - Arthralgia [Not Recovered/Not Resolved]

NARRATIVE: CASE EVENT DATE: 20211202
